FAERS Safety Report 4640581-6 (Version None)
Quarter: 2005Q2

REPORT INFORMATION
  Report Type: 
  Country: None (occurrence: None)
  Receive Date: 20050321
  Receipt Date: 20040413
  Transmission Date: 20051028
  Serious: Yes (Hospitalization, Other)
  Sender: FDA-Public Use
  Company Number: 2004-04-0574

PATIENT
  Age: 55 Year
  Sex: Female
  Weight: 93.441 kg

DRUGS (3)
  1. PEG-INTRON [Suspect]
     Indication: HEPATITIS C
     Dosage: 150 MCG QWK SUBCUTANEOUS
     Route: 058
     Dates: start: 20040301, end: 20040412
  2. REBETOL [Suspect]
     Indication: HEPATITIS C
     Dosage: 1200 MG QD ORAL
     Route: 048
     Dates: start: 20040301, end: 20040412
  3. NEXIUM (ESOEMPRAZOLE) [Concomitant]

REACTIONS (4)
  - DEPRESSION [None]
  - EPISTAXIS [None]
  - SKIN FISSURES [None]
  - THROMBOCYTOPENIA [None]
